FAERS Safety Report 24282545 (Version 1)
Quarter: 2024Q3

REPORT INFORMATION
  Report Type: Spontaneous
  Country: US (occurrence: US)
  Receive Date: 20240904
  Receipt Date: 20240904
  Transmission Date: 20241016
  Serious: Yes (Disabling)
  Sender: TEVA
  Company Number: US-TEVA-VS-3238244

PATIENT
  Age: 61 Year
  Sex: Female

DRUGS (1)
  1. NUVIGIL [Suspect]
     Active Substance: ARMODAFINIL
     Indication: Sleep apnoea syndrome
     Dosage: STRENGTH: 1.5 PILLS/250 AND 1/2 250 AND DOSAGE: 750
     Route: 065
     Dates: start: 2012

REACTIONS (2)
  - Disability [Unknown]
  - Product use in unapproved indication [Unknown]

NARRATIVE: CASE EVENT DATE: 20120101
